FAERS Safety Report 25274796 (Version 1)
Quarter: 2025Q2

REPORT INFORMATION
  Report Type: Spontaneous
  Country: GB (occurrence: GB)
  Receive Date: 20250506
  Receipt Date: 20250506
  Transmission Date: 20250717
  Serious: Yes (Hospitalization)
  Sender: MYLAN
  Company Number: GB-MYLANLABS-2025M1037920

PATIENT
  Sex: Male

DRUGS (4)
  1. TOBI PODHALER [Suspect]
     Active Substance: TOBRAMYCIN
     Indication: Cystic fibrosis
     Dosage: 112 MILLIGRAM, BID (INHALE THE CONTENTS OF 4 CAPSULES TWICE A DAY)
  2. TOBI PODHALER [Suspect]
     Active Substance: TOBRAMYCIN
     Dosage: 112 MILLIGRAM, BID (INHALE THE CONTENTS OF 4 CAPSULES TWICE A DAY)
     Route: 055
  3. TOBI PODHALER [Suspect]
     Active Substance: TOBRAMYCIN
     Dosage: 112 MILLIGRAM, BID (INHALE THE CONTENTS OF 4 CAPSULES TWICE A DAY)
     Route: 055
  4. TOBI PODHALER [Suspect]
     Active Substance: TOBRAMYCIN
     Dosage: 112 MILLIGRAM, BID (INHALE THE CONTENTS OF 4 CAPSULES TWICE A DAY)

REACTIONS (2)
  - Hospitalisation [Unknown]
  - Off label use [Unknown]
